FAERS Safety Report 10100853 (Version 2)
Quarter: 2014Q2

REPORT INFORMATION
  Report Type: Spontaneous
  Country: JP (occurrence: JP)
  Receive Date: 20140423
  Receipt Date: 20140423
  Transmission Date: 20141212
  Serious: Yes (Life-Threatening, Hospitalization, Congenital Anomaly)
  Sender: FDA-Public Use
  Company Number: JP-DSJP-DSJ-2010-18536

PATIENT
  Sex: 0

DRUGS (1)
  1. OLMETEC [Suspect]
     Indication: GESTATIONAL HYPERTENSION
     Dosage: EVERY
     Route: 064
     Dates: start: 20100921, end: 20101012

REACTIONS (7)
  - Renal dysplasia [Recovered/Resolved with Sequelae]
  - Foetal exposure timing unspecified [Unknown]
  - Hypotension [Recovering/Resolving]
  - Anuria [Recovering/Resolving]
  - Respiratory disorder [Recovered/Resolved]
  - Retinopathy of prematurity [Recovering/Resolving]
  - Heart sounds abnormal [Recovered/Resolved]
